FAERS Safety Report 8480116-3 (Version None)
Quarter: 2012Q2

REPORT INFORMATION
  Report Type: 
  Country: None (occurrence: None)
  Receive Date: 20120629
  Receipt Date: 20120620
  Transmission Date: 20120825
  Serious: Yes (Hospitalization)
  Sender: FDA-Public Use
  Company Number: US-ELI_LILLY_AND_COMPANY-US201203005795

PATIENT
  Sex: Female
  Weight: 43.084 kg

DRUGS (5)
  1. TRAZODONE HCL [Concomitant]
     Dosage: UNK
  2. SEROQUEL [Concomitant]
     Dosage: UNK
  3. VALPROIC ACID [Concomitant]
     Indication: CONVULSION
     Dosage: UNK
  4. FLUCONAZOLE [Concomitant]
     Dosage: UNK
  5. FORTEO [Suspect]
     Indication: OSTEOPOROSIS
     Dosage: UNK, QD
     Route: 058
     Dates: start: 20110801

REACTIONS (5)
  - ABDOMINAL PAIN LOWER [None]
  - NAUSEA [None]
  - GASTROSTOMY TUBE INSERTION [None]
  - PNEUMONIA [None]
  - CONVULSION [None]
